FAERS Safety Report 20297203 (Version 5)
Quarter: 2022Q2

REPORT INFORMATION
  Report Type: Spontaneous
  Country: US (occurrence: US)
  Receive Date: 20220105
  Receipt Date: 20220617
  Transmission Date: 20220721
  Serious: Yes (Hospitalization, Other)
  Sender: FDA-Public Use
  Company Number: US-Hikma Pharmaceuticals USA Inc.-US-H14001-21-05598

PATIENT
  Age: 18 Year
  Sex: Male
  Weight: 78 kg

DRUGS (26)
  1. MERCAPTOPURINE [Suspect]
     Active Substance: MERCAPTOPURINE
     Indication: Acute lymphocytic leukaemia
     Route: 048
     Dates: start: 20211005, end: 20211216
  2. MERCAPTOPURINE [Suspect]
     Active Substance: MERCAPTOPURINE
     Dosage: 50% DOSE REDUCTION
     Route: 048
     Dates: start: 20211230
  3. MERCAPTOPURINE [Suspect]
     Active Substance: MERCAPTOPURINE
     Route: 048
     Dates: start: 20220222, end: 20220304
  4. MERCAPTOPURINE [Suspect]
     Active Substance: MERCAPTOPURINE
     Route: 048
     Dates: start: 20220318, end: 20220509
  5. MERCAPTOPURINE [Suspect]
     Active Substance: MERCAPTOPURINE
     Dosage: 50% DOSE REDUCTION
     Route: 048
     Dates: start: 20220318
  6. MERCAPTOPURINE [Suspect]
     Active Substance: MERCAPTOPURINE
     Dosage: INCREASED AT EVERY THREE TO FOUR WEEKS INTERVAL WHEN ANC AND PLT WERE MET PER PROTOCOL
     Route: 048
     Dates: start: 20220329
  7. METHOTREXATE [Suspect]
     Active Substance: METHOTREXATE
     Indication: Acute lymphocytic leukaemia
     Route: 037
     Dates: start: 20211007
  8. METHOTREXATE [Suspect]
     Active Substance: METHOTREXATE
     Indication: Acute lymphocytic leukaemia
     Route: 048
     Dates: start: 20211012, end: 20211216
  9. METHOTREXATE [Suspect]
     Active Substance: METHOTREXATE
     Dosage: 50% DOSE REDUCTION
     Route: 048
     Dates: start: 20211230
  10. METHOTREXATE [Suspect]
     Active Substance: METHOTREXATE
     Route: 048
     Dates: start: 20220222, end: 20220304
  11. METHOTREXATE [Suspect]
     Active Substance: METHOTREXATE
     Route: 048
     Dates: start: 20220329, end: 20220509
  12. METHOTREXATE [Suspect]
     Active Substance: METHOTREXATE
     Dosage: 50% DOSE REDUCTION
     Route: 048
     Dates: start: 20220318
  13. METHOTREXATE [Suspect]
     Active Substance: METHOTREXATE
     Dosage: INCREASED AT EVERY THREE TO FOUR WEEKS INTERVAL WHEN ANC AND PLT WERE MET PER PROTOCOL
     Route: 048
     Dates: start: 20220329
  14. PREDNISONE [Suspect]
     Active Substance: PREDNISONE
     Indication: Acute lymphocytic leukaemia
     Route: 048
     Dates: start: 20211005
  15. PREDNISONE [Suspect]
     Active Substance: PREDNISONE
     Route: 048
     Dates: start: 20210421
  16. VINCRISTINE [Suspect]
     Active Substance: VINCRISTINE
     Indication: Acute lymphocytic leukaemia
     Route: 042
     Dates: start: 20200923
  17. VINCRISTINE [Suspect]
     Active Substance: VINCRISTINE
     Route: 042
     Dates: start: 20211005
  18. RUXOLITINIB [Suspect]
     Active Substance: RUXOLITINIB
     Indication: Acute lymphocytic leukaemia
     Route: 048
     Dates: start: 20211005
  19. RUXOLITINIB [Suspect]
     Active Substance: RUXOLITINIB
     Route: 048
     Dates: start: 20211228, end: 20220304
  20. RUXOLITINIB [Suspect]
     Active Substance: RUXOLITINIB
     Route: 048
     Dates: start: 20220322, end: 20220502
  21. XARELTO [Concomitant]
     Active Substance: RIVAROXABAN
     Indication: Product used for unknown indication
     Dosage: UNKNOWN
     Route: 065
     Dates: start: 20220304
  22. ATIVAN [Concomitant]
     Active Substance: LORAZEPAM
     Indication: Product used for unknown indication
     Dosage: UNKNOWN
     Route: 065
     Dates: start: 20210521
  23. BACTRIM [Concomitant]
     Active Substance: SULFAMETHOXAZOLE\TRIMETHOPRIM
     Indication: Product used for unknown indication
     Dosage: UNKNOWN
     Route: 065
     Dates: start: 20200624
  24. ZOFRAN [Concomitant]
     Active Substance: ONDANSETRON HYDROCHLORIDE
     Indication: Product used for unknown indication
     Dosage: UNKNOWN
     Route: 065
     Dates: start: 20200502
  25. MIRALAX [Concomitant]
     Active Substance: POLYETHYLENE GLYCOL 3350
     Indication: Product used for unknown indication
     Dosage: UNKNOWN
     Route: 065
     Dates: start: 20200502
  26. FLONASE [Concomitant]
     Active Substance: FLUTICASONE PROPIONATE
     Indication: Product used for unknown indication
     Dosage: UNKNOWN
     Route: 065
     Dates: start: 20211217

REACTIONS (33)
  - Rhinorrhoea [Unknown]
  - Cough [Unknown]
  - Fatigue [Unknown]
  - Oxygen saturation decreased [Unknown]
  - Diarrhoea [Unknown]
  - Febrile neutropenia [Recovered/Resolved with Sequelae]
  - Abdominal pain upper [Unknown]
  - Pain [Unknown]
  - Neutrophil count decreased [Unknown]
  - Liver function test increased [Unknown]
  - Cytomegalovirus infection [Not Recovered/Not Resolved]
  - Pyrexia [Unknown]
  - Mucosal disorder [Unknown]
  - Clostridium difficile infection [Recovered/Resolved]
  - Atypical pneumonia [Unknown]
  - Aspergillus infection [Unknown]
  - Acute respiratory distress syndrome [Recovered/Resolved]
  - Lung opacity [Unknown]
  - Condition aggravated [Unknown]
  - Hepatic steatosis [Unknown]
  - Infectious pleural effusion [Unknown]
  - Pulmonary embolism [Unknown]
  - Atrial thrombosis [Unknown]
  - Thrombosis [Unknown]
  - Myelosuppression [Unknown]
  - Epistaxis [Recovered/Resolved]
  - Weight decreased [Unknown]
  - Alanine aminotransferase increased [Unknown]
  - Leukopenia [Unknown]
  - Neutropenia [Unknown]
  - Lymphopenia [Unknown]
  - Blood pressure increased [Recovered/Resolved]
  - Renin decreased [Unknown]

NARRATIVE: CASE EVENT DATE: 20211214
